FAERS Safety Report 5717784-2 (Version None)
Quarter: 2008Q2

REPORT INFORMATION
  Report Type: 
  Country: None (occurrence: None)
  Receive Date: 20080425
  Receipt Date: 20080415
  Transmission Date: 20081010
  Serious: Yes (Hospitalization, Other)
  Sender: FDA-Public Use
  Company Number: US-ABBOTT-08P-163-0447541-00

PATIENT
  Sex: Male
  Weight: 63.56 kg

DRUGS (16)
  1. GENGRAF [Suspect]
     Indication: RENAL TRANSPLANT
     Route: 048
     Dates: start: 20031022
  2. INEGY [Interacting]
     Indication: BLOOD CHOLESTEROL ABNORMAL
     Route: 048
     Dates: start: 20070601, end: 20070801
  3. ACETYLSALICYLIC ACID SRT [Concomitant]
     Indication: CARDIOVASCULAR EVENT PROPHYLAXIS
     Route: 048
  4. MYCOPHENOLATE MOFETIL [Concomitant]
     Indication: RENAL TRANSPLANT
     Route: 048
  5. METOPROLOL TARTRATE [Concomitant]
     Indication: HYPERTENSION
     Route: 048
  6. GLYCERYL TRINITRATE [Concomitant]
     Indication: CARDIOVASCULAR EVENT PROPHYLAXIS
     Route: 060
  7. CLOPIDOGREL [Concomitant]
     Indication: CARDIOVASCULAR EVENT PROPHYLAXIS
     Route: 048
  8. PREDNISONE [Concomitant]
     Indication: RENAL TRANSPLANT
     Route: 048
  9. PARACETAMOL [Concomitant]
     Indication: PAIN
     Route: 048
  10. MAGNESIUM OXIDE [Concomitant]
     Indication: MINERAL SUPPLEMENTATION
     Route: 048
  11. FISH OIL [Concomitant]
     Indication: VITAMIN SUPPLEMENTATION
     Route: 048
  12. ALENDRONATE SODIUM [Concomitant]
     Indication: OSTEOPOROSIS
     Route: 046
  13. CALCIUM WITH VITAMIN D [Concomitant]
     Indication: VITAMIN SUPPLEMENTATION
     Route: 048
  14. NICOTINIC ACID [Concomitant]
     Indication: BLOOD CHOLESTEROL
     Route: 048
     Dates: start: 20080416
  15. NICOTINIC ACID [Concomitant]
     Route: 048
     Dates: start: 20080201, end: 20080415
  16. WARFARIN SODIUM [Concomitant]
     Indication: CARDIOVASCULAR EVENT PROPHYLAXIS
     Route: 048
     Dates: start: 20070601, end: 20080328

REACTIONS (6)
  - DRUG INTERACTION [None]
  - DYSPEPSIA [None]
  - FATIGUE [None]
  - MALAISE [None]
  - MYOCARDIAL INFARCTION [None]
  - VOMITING [None]
